FAERS Safety Report 18086602 (Version 1)
Quarter: 2020Q3

REPORT INFORMATION
  Report Type: Other
  Country: US (occurrence: US)
  Receive Date: 20200729
  Receipt Date: 20200729
  Transmission Date: 20201103
  Serious: Yes (Other)
  Sender: FDA-Public Use
  Company Number: US-ROCHE-2648135

PATIENT

DRUGS (10)
  1. RITUXIMAB. [Suspect]
     Active Substance: RITUXIMAB
     Indication: CYTOPENIA
     Route: 065
  2. DACLIZUMAB [Suspect]
     Active Substance: DACLIZUMAB
     Indication: CYTOPENIA
     Route: 065
  3. IMMUNOGLOBULIN HUMAN NORMAL [Suspect]
     Active Substance: HUMAN IMMUNOGLOBULIN G
     Indication: CYTOPENIA
     Route: 042
  4. DARATUMUMAB [Suspect]
     Active Substance: DARATUMUMAB
     Indication: CYTOPENIA
     Route: 065
  5. MYCOPHENOLATE MOFETIL. [Suspect]
     Active Substance: MYCOPHENOLATE MOFETIL
     Indication: CYTOPENIA
     Route: 065
  6. SIROLIMUS. [Suspect]
     Active Substance: SIROLIMUS
     Indication: CYTOPENIA
     Route: 065
  7. ELTROMBOPAG [Suspect]
     Active Substance: ELTROMBOPAG
     Indication: CYTOPENIA
     Route: 065
  8. METHYLPREDNISOLONE. [Suspect]
     Active Substance: METHYLPREDNISOLONE
     Indication: CYTOPENIA
     Route: 065
  9. MYCOPHENOLATE MOFETIL. [Suspect]
     Active Substance: MYCOPHENOLATE MOFETIL
     Indication: PROPHYLAXIS AGAINST TRANSPLANT REJECTION
  10. OFATUMUMAB [Suspect]
     Active Substance: OFATUMUMAB
     Indication: CYTOPENIA
     Route: 065

REACTIONS (15)
  - Bacteraemia [Unknown]
  - Bacterial infection [Unknown]
  - Cytomegalovirus infection reactivation [Unknown]
  - Human herpesvirus 6 infection reactivation [Unknown]
  - Pneumonia [Unknown]
  - B-cell aplasia [Unknown]
  - Hypogammaglobulinaemia [Unknown]
  - Upper respiratory tract infection bacterial [Unknown]
  - Viral upper respiratory tract infection [Unknown]
  - Viral infection [Unknown]
  - Cataract [Unknown]
  - Adenovirus reactivation [Unknown]
  - BK virus infection [Unknown]
  - Osteonecrosis [Unknown]
  - Iron overload [Unknown]
